FAERS Safety Report 7319225-0 (Version None)
Quarter: 2011Q1

REPORT INFORMATION
  Report Type: 
  Country: None (occurrence: None)
  Receive Date: 20110228
  Receipt Date: 20110221
  Transmission Date: 20110831
  Serious: Yes (Other)
  Sender: FDA-Public Use
  Company Number: IE-PFIZER INC-2011039042

PATIENT
  Age: 40 Year
  Sex: Female

DRUGS (2)
  1. PARACETAMOL [Concomitant]
     Dosage: UNK
  2. LYRICA [Suspect]
     Indication: PAIN
     Dosage: 25 MG, 1X/DAY
     Dates: start: 20101101

REACTIONS (2)
  - SELF-INJURIOUS IDEATION [None]
  - DEPERSONALISATION [None]
